FAERS Safety Report 26059987 (Version 1)
Quarter: 2025Q4

REPORT INFORMATION
  Report Type: Spontaneous
  Country: US (occurrence: None)
  Receive Date: 20251118
  Receipt Date: 20251118
  Transmission Date: 20260117
  Serious: Yes (Other)
  Sender: ISTITUTO BICHIMICO ITALIANO GIOVANNI LORENZINI (IBIGEN)
  Company Number: US-IBIGEN-2025-017411

PATIENT
  Age: 61 Year
  Sex: Male

DRUGS (1)
  1. PENICILLIN G POTASSIUM [Suspect]
     Active Substance: PENICILLIN G POTASSIUM
     Dosage: IV 1 MILLION UNITS/H FOR 14 DAYS?ADDITIONAL COMMENT: DRUG DISCONTINUED AND REPLACED WITH BENZATHI...
     Route: 040

REACTIONS (3)
  - Drug ineffective [Recovered/Resolved]
  - Disease progression [Recovered/Resolved]
  - Eye infection syphilitic [Recovered/Resolved]
